FAERS Safety Report 13358850 (Version 2)
Quarter: 2017Q2

REPORT INFORMATION
  Report Type: Spontaneous
  Country: JP (occurrence: JP)
  Receive Date: 20170322
  Receipt Date: 20170404
  Transmission Date: 20170830
  Serious: Yes (Other)
  Sender: FDA-Public Use
  Company Number: JP-BAYER-2017-047953

PATIENT
  Sex: Female

DRUGS (3)
  1. ALDACTONE A [Suspect]
     Active Substance: SPIRONOLACTONE
     Indication: POLYURIA
     Route: 048
  2. BAYASPIRIN 100 MG [Suspect]
     Active Substance: ASPIRIN
     Dosage: UNK
     Route: 048
  3. ALDACTONE A [Suspect]
     Active Substance: SPIRONOLACTONE
     Indication: DIURETIC THERAPY

REACTIONS (1)
  - Hyperkalaemia [None]
